FAERS Safety Report 6619583-6 (Version None)
Quarter: 2010Q1

REPORT INFORMATION
  Report Type: 
  Country: None (occurrence: None)
  Receive Date: 20100309
  Receipt Date: 20100301
  Transmission Date: 20100710
  Serious: Yes (Other)
  Sender: FDA-Public Use
  Company Number: US-RB-004232-10

PATIENT
  Age: 84 Year
  Sex: Male

DRUGS (4)
  1. MUCINEX D MAXIMUM STRENGTH [Suspect]
     Dosage: TOOK ONE WHOLE TABLET ONCE AND ONE HALF OF THE TABLET THREE TIMES ONLY AT NIGHT BEFORE BED
     Route: 048
  2. MUCINEX D [Suspect]
     Dosage: TOOK 1 TABLET AT NIGHT BEFORE BED FOR 4 NIGHTS
     Route: 048
  3. BABY ASPIRIN [Concomitant]
  4. HYDROCHLOROTHIAZIDE [Concomitant]

REACTIONS (3)
  - BLOOD PRESSURE INCREASED [None]
  - DYSURIA [None]
  - WRONG TECHNIQUE IN DRUG USAGE PROCESS [None]
